FAERS Safety Report 5264582-2 (Version None)
Quarter: 2007Q1

REPORT INFORMATION
  Report Type: 
  Country: None (occurrence: None)
  Receive Date: 20070314
  Receipt Date: 20070308
  Transmission Date: 20070707
  Serious: Yes (Hospitalization)
  Sender: FDA-Public Use
  Company Number: JP-BRISTOL-MYERS SQUIBB COMPANY-13706718

PATIENT
  Age: 30 Year
  Sex: Male

DRUGS (3)
  1. CISPLATIN [Suspect]
     Indication: TESTIS CANCER
  2. ETOPOSIDE [Suspect]
     Indication: TESTIS CANCER
  3. BLEOMYCIN [Suspect]
     Indication: TESTIS CANCER

REACTIONS (1)
  - ACUTE MYOCARDIAL INFARCTION [None]
